FAERS Safety Report 4401577-2 (Version None)
Quarter: 2004Q3

REPORT INFORMATION
  Report Type: 
  Country: None (occurrence: None)
  Receive Date: 20040714
  Receipt Date: 20040624
  Transmission Date: 20050211
  Serious: Yes (Hospitalization, Other)
  Sender: FDA-Public Use
  Company Number: USA040464744

PATIENT
  Age: 82 Year
  Sex: Male
  Weight: 68 kg

DRUGS (2)
  1. FORTEO [Suspect]
     Indication: FRACTURE
     Dosage: 20 UG DAY
     Dates: start: 20031201, end: 20040511
  2. FORTEO [Suspect]
     Indication: OSTEOPOROSIS
     Dosage: 20 UG DAY
     Dates: start: 20031201, end: 20040511

REACTIONS (6)
  - BLADDER NEOPLASM [None]
  - COLD SWEAT [None]
  - HYPERHIDROSIS [None]
  - MUSCLE CRAMP [None]
  - PHARMACEUTICAL PRODUCT COMPLAINT [None]
  - RENAL NEOPLASM [None]
